FAERS Safety Report 4430020-2 (Version None)
Quarter: 2004Q3

REPORT INFORMATION
  Report Type: 
  Country: None (occurrence: None)
  Receive Date: 20040820
  Receipt Date: 20040813
  Transmission Date: 20050211
  Serious: Yes (Death, Life-Threatening, Hospitalization)
  Sender: FDA-Public Use
  Company Number: PHBS2004CA10802

PATIENT
  Age: 58 Year
  Sex: Male
  Weight: 69 kg

DRUGS (7)
  1. AREDIA [Suspect]
     Indication: HYPERCALCAEMIA OF MALIGNANCY
  2. PACLITAXEL [Suspect]
     Indication: NON-SMALL CELL LUNG CANCER STAGE IV
     Dosage: 396 MG/DAY
     Dates: start: 20031012, end: 20031012
  3. CARBOPLATIN [Suspect]
     Indication: NON-SMALL CELL LUNG CANCER STAGE IV
     Dosage: 536 MG/DAY
     Dates: start: 20031012, end: 20031012
  4. LASIX [Concomitant]
  5. DEXAMETHASONE [Concomitant]
  6. DILAUDID [Concomitant]
  7. ATIVAN [Concomitant]

REACTIONS (10)
  - DYSPNOEA [None]
  - HYPOCALCAEMIA [None]
  - HYPOTENSION [None]
  - MALIGNANT NEOPLASM PROGRESSION [None]
  - NEUTROPENIA [None]
  - PANCYTOPENIA [None]
  - PNEUMONIA STAPHYLOCOCCAL [None]
  - PNEUMONIA STREPTOCOCCAL [None]
  - RED BLOOD CELL COUNT DECREASED [None]
  - THROMBOCYTOPENIA [None]
